FAERS Safety Report 14271413 (Version 4)
Quarter: 2019Q1

REPORT INFORMATION
  Report Type: Spontaneous
  Country: US (occurrence: US)
  Receive Date: 20171211
  Receipt Date: 20190307
  Transmission Date: 20190417
  Serious: Yes (Other)
  Sender: FDA-Public Use
  Company Number: US-PFIZER INC-2017526840

PATIENT
  Age: 60 Year
  Sex: Female
  Weight: 77.11 kg

DRUGS (1)
  1. NARDIL [Suspect]
     Active Substance: PHENELZINE SULFATE
     Dosage: UNK

REACTIONS (9)
  - Seizure [Recovered/Resolved]
  - Anxiety [Unknown]
  - Depression [Unknown]
  - Loss of consciousness [Unknown]
  - Screaming [Unknown]
  - Fracture [Unknown]
  - Crying [Unknown]
  - Fall [Unknown]
  - Withdrawal syndrome [Unknown]
